FAERS Safety Report 12166196 (Version 1)
Quarter: 2016Q1

REPORT INFORMATION
  Report Type: Spontaneous
  Country: US (occurrence: US)
  Receive Date: 20160309
  Receipt Date: 20160309
  Transmission Date: 20160526
  Serious: Yes (Other)
  Sender: FDA-Public Use
  Company Number: US-MEDA-2016030021

PATIENT

DRUGS (2)
  1. ANADROL-50 [Suspect]
     Active Substance: OXYMETHOLONE
     Indication: CONGENITAL APLASTIC ANAEMIA
     Route: 048
     Dates: start: 201601
  2. ANADROL-50 [Suspect]
     Active Substance: OXYMETHOLONE
     Indication: CONGENITAL APLASTIC ANAEMIA
     Dosage: 2 MG/KG
     Route: 048
     Dates: start: 201601

REACTIONS (3)
  - Aspartate aminotransferase increased [Unknown]
  - Blood alkaline phosphatase increased [Unknown]
  - Alanine aminotransferase increased [Unknown]

NARRATIVE: CASE EVENT DATE: 2016
